FAERS Safety Report 25491548 (Version 1)
Quarter: 2025Q2

REPORT INFORMATION
  Report Type: Spontaneous
  Country: CA (occurrence: CA)
  Receive Date: 20250629
  Receipt Date: 20250629
  Transmission Date: 20250716
  Serious: Yes (Hospitalization, Other)
  Sender: B. BRAUN MEDICAL INC.
  Company Number: None

PATIENT
  Sex: Female
  Weight: 54 kg

DRUGS (25)
  1. HEPARIN SODIUM [Suspect]
     Active Substance: HEPARIN SODIUM
     Indication: Thrombosis prophylaxis
     Dosage: 2 EVERY 1 DAYS
  2. FENTANYL [Concomitant]
     Active Substance: FENTANYL
  3. DULOXETINE HYDROCHLORIDE [Concomitant]
     Active Substance: DULOXETINE HYDROCHLORIDE
  4. ACETAMINOPHEN [Concomitant]
     Active Substance: ACETAMINOPHEN
  5. ASPIRIN [Concomitant]
     Active Substance: ASPIRIN
  6. ACYCLOVIR [Concomitant]
     Active Substance: ACYCLOVIR
  7. ATORVASTATIN CALCIUM [Concomitant]
     Active Substance: ATORVASTATIN CALCIUM
  8. DILTIAZEM [Concomitant]
     Active Substance: DILTIAZEM
  9. HALOPERIDOL [Concomitant]
     Active Substance: HALOPERIDOL
  10. HYDROMORPHONE [Concomitant]
     Active Substance: HYDROMORPHONE
  11. INSULIN NOS [Concomitant]
     Active Substance: INSULIN NOS
  12. LANSOPRAZOLE [Concomitant]
     Active Substance: LANSOPRAZOLE
  13. MEROPENEM [Concomitant]
     Active Substance: MEROPENEM
  14. METOCLOPRAMIDE [Concomitant]
     Active Substance: METOCLOPRAMIDE
  15. PANTOPRAZOLE [Concomitant]
     Active Substance: PANTOPRAZOLE
  16. PIPERACILLIN SODIUM\TAZOBACTAM SODIUM [Concomitant]
     Active Substance: PIPERACILLIN SODIUM\TAZOBACTAM SODIUM
  17. POLYETHYLENE GLYCOL [Concomitant]
     Active Substance: POLYETHYLENE GLYCOL
  18. PREGABALIN [Concomitant]
     Active Substance: PREGABALIN
  19. SEREVENT DISKUS [Concomitant]
     Active Substance: SALMETEROL XINAFOATE
  20. SEVELAMER [Concomitant]
     Active Substance: SEVELAMER
  21. SODIUM BICARBONATE [Concomitant]
     Active Substance: SODIUM BICARBONATE
  22. TIOTROPIUM BROMIDE [Concomitant]
     Active Substance: TIOTROPIUM BROMIDE
  23. TRAZODONE [Concomitant]
     Active Substance: TRAZODONE HYDROCHLORIDE
  24. VALACYCLOVIR [Concomitant]
     Active Substance: VALACYCLOVIR HYDROCHLORIDE
  25. VITAMIN D [Concomitant]
     Active Substance: VITAMIN D NOS

REACTIONS (2)
  - Upper gastrointestinal haemorrhage [Recovered/Resolved]
  - Gastroduodenal ulcer [Recovered/Resolved]
